FAERS Safety Report 13247889 (Version 2)
Quarter: 2017Q1

REPORT INFORMATION
  Report Type: Spontaneous
  Country: US (occurrence: US)
  Receive Date: 20170217
  Receipt Date: 20170309
  Transmission Date: 20170428
  Serious: No
  Sender: FDA-Public Use
  Company Number: US-TAIHO ONCOLOGY INC-EU-2017-00276

PATIENT
  Sex: Male

DRUGS (8)
  1. QUINAPRIL. [Concomitant]
     Active Substance: QUINAPRIL
     Dosage: NI
  2. XARELTO [Concomitant]
     Active Substance: RIVAROXABAN
     Dosage: NI
  3. VANOS [Concomitant]
     Active Substance: FLUOCINONIDE
     Dosage: NI
  4. CLONIDINE. [Concomitant]
     Active Substance: CLONIDINE
     Dosage: NI
  5. LONSURF [Suspect]
     Active Substance: TIPIRACIL HYDROCHLORIDE\TRIFLURIDINE
     Indication: COLON CANCER
     Route: 048
     Dates: start: 20161104
  6. METROGEL [Concomitant]
     Active Substance: METRONIDAZOLE
     Dosage: NI
  7. BYSTOLIC [Concomitant]
     Active Substance: NEBIVOLOL HYDROCHLORIDE
     Dosage: NI
  8. NYSTATIN. [Concomitant]
     Active Substance: NYSTATIN
     Dosage: NI

REACTIONS (1)
  - Disease progression [Unknown]
